FAERS Safety Report 14562937 (Version 3)
Quarter: 2024Q3

REPORT INFORMATION
  Report Type: Spontaneous
  Country: ES (occurrence: ES)
  Receive Date: 20180222
  Receipt Date: 20240909
  Transmission Date: 20241017
  Serious: Yes (Other)
  Sender: AUROBINDO
  Company Number: ES-AEMPS-322926

PATIENT
  Age: 34 Year
  Sex: Female

DRUGS (4)
  1. TOPIRAMATE [Suspect]
     Active Substance: TOPIRAMATE
     Indication: Impulse-control disorder
     Dosage: 25 MILLIGRAM, TWO TIMES A DAY ( EVERY 12 HOUR)
     Route: 048
     Dates: start: 20180108, end: 20180111
  2. BRINTELLIX [Concomitant]
     Active Substance: VORTIOXETINE HYDROBROMIDE
     Indication: Major depression
     Dosage: 20 MILLIGRAM, DAILY
     Route: 048
     Dates: start: 201711
  3. PREGABALIN [Concomitant]
     Active Substance: PREGABALIN
     Indication: Major depression
     Dosage: 150 MILLIGRAM, 3 TIMES A DAY (150 MILLIGRAM, EVERY 8 HOUR)
     Route: 048
     Dates: start: 201711
  4. CLONAZEPAM [Concomitant]
     Active Substance: CLONAZEPAM
     Indication: Anxiety
     Dosage: ()
     Route: 048
     Dates: start: 20180109

REACTIONS (1)
  - Diplopia [Recovered/Resolved]

NARRATIVE: CASE EVENT DATE: 20180110
